FAERS Safety Report 20391108 (Version 1)
Quarter: 2022Q1

REPORT INFORMATION
  Report Type: Spontaneous
  Country: US (occurrence: None)
  Receive Date: 20220127
  Receipt Date: 20220127
  Transmission Date: 20220424
  Serious: Yes (Hospitalization)
  Sender: FDA-Public Use
  Company Number: None

PATIENT
  Age: 38 Year
  Sex: Female

DRUGS (1)
  1. OPSUMIT [Suspect]
     Active Substance: MACITENTAN
     Indication: Pulmonary arterial hypertension
     Dosage: FREQUENCY : DAILY;?
     Route: 048
     Dates: start: 20200401

REACTIONS (7)
  - Pneumonia respiratory syncytial viral [None]
  - Sepsis [None]
  - Thrombocytopenia [None]
  - Myalgia [None]
  - Headache [None]
  - Pleuritic pain [None]
  - Pulmonary embolism [None]

NARRATIVE: CASE EVENT DATE: 20220110
